FAERS Safety Report 15325479 (Version 3)
Quarter: 2022Q2

REPORT INFORMATION
  Report Type: Report from Study
  Country: FR (occurrence: FR)
  Receive Date: 20180828
  Receipt Date: 20220404
  Transmission Date: 20220721
  Serious: Yes (Hospitalization)
  Sender: FDA-Public Use
  Company Number: FR-SA-2018SA228592

PATIENT
  Age: 65 Year
  Sex: Male
  Weight: 71.5 kg

DRUGS (6)
  1. AFLIBERCEPT [Suspect]
     Active Substance: AFLIBERCEPT
     Indication: Colorectal cancer metastatic
     Dosage: 4 MG/KG, QCY
     Route: 042
     Dates: start: 20180529, end: 20180529
  2. IRINOTECAN [Suspect]
     Active Substance: IRINOTECAN
     Indication: Colorectal cancer metastatic
     Dosage: 150 MG/M2, QCY
     Route: 042
     Dates: start: 20180514, end: 20180514
  3. FLUOROURACIL [Suspect]
     Active Substance: FLUOROURACIL
     Indication: Colorectal cancer metastatic
     Dosage: 2400 MG/M2, QCY
     Route: 042
     Dates: start: 20180514, end: 20180514
  4. LEUCOVORIN [Suspect]
     Active Substance: LEUCOVORIN
     Indication: Colorectal cancer metastatic
     Dosage: UNK UNK, QCY
     Route: 042
     Dates: start: 20180514, end: 20180514
  5. NEBIVOLOL [Concomitant]
     Active Substance: NEBIVOLOL
     Indication: Hypertension
     Dosage: 1 DF, QD
     Dates: start: 20180731
  6. INNOHEP [Concomitant]
     Active Substance: TINZAPARIN SODIUM
     Indication: Venous thrombosis
     Dosage: 0.7 ML, QD
     Route: 058
     Dates: start: 20180731, end: 20181015

REACTIONS (2)
  - Pyrexia [Recovered/Resolved]
  - Oedema peripheral [Recovered/Resolved]

NARRATIVE: CASE EVENT DATE: 20180722
